FAERS Safety Report 16350903 (Version 3)
Quarter: 2019Q3

REPORT INFORMATION
  Report Type: Spontaneous
  Country: US (occurrence: US)
  Receive Date: 20190524
  Receipt Date: 20190709
  Transmission Date: 20191004
  Serious: Yes (Other)
  Sender: FDA-Public Use
  Company Number: PHEH2019US021283

PATIENT
  Sex: Female

DRUGS (3)
  1. LYNPARZA [Suspect]
     Active Substance: OLAPARIB
     Indication: BREAST CANCER FEMALE
     Dosage: 150 MG, BID
     Route: 048
  2. AFINITOR [Suspect]
     Active Substance: EVEROLIMUS
     Dosage: 10 MG, QD
     Route: 048
  3. AFINITOR [Suspect]
     Active Substance: EVEROLIMUS
     Indication: BREAST CANCER FEMALE
     Dosage: 10 MG, QD
     Route: 048
     Dates: start: 20190424

REACTIONS (10)
  - Rhinorrhoea [Unknown]
  - Acne [Unknown]
  - Nasal congestion [Unknown]
  - Lacrimation increased [Unknown]
  - Malignant neoplasm progression [Unknown]
  - Sinus disorder [Unknown]
  - Eye pruritus [Unknown]
  - Hypersensitivity [Unknown]
  - Breast cancer female [Unknown]
  - Headache [Unknown]
